FAERS Safety Report 7905195-0 (Version None)
Quarter: 2011Q4

REPORT INFORMATION
  Report Type: 
  Country: None (occurrence: None)
  Receive Date: 20111109
  Receipt Date: 20111103
  Transmission Date: 20120403
  Serious: Yes (Life-Threatening, Other)
  Sender: FDA-Public Use
  Company Number: US-ASTRAZENECA-2011SE66722

PATIENT
  Age: 29 Year
  Sex: Female
  Weight: 51.3 kg

DRUGS (8)
  1. SEROQUEL [Suspect]
     Indication: SLEEP DISORDER
     Route: 048
  2. SEROQUEL [Suspect]
     Indication: POST-TRAUMATIC STRESS DISORDER
     Route: 048
  3. OXYCONTIN [Suspect]
     Dosage: 2 AND HALF
     Route: 065
  4. NEURONTIN [Concomitant]
  5. XANAX [Suspect]
     Dosage: 10-20
     Route: 065
  6. SEROQUEL [Suspect]
     Route: 048
     Dates: start: 20010101
  7. SEROQUEL [Suspect]
     Route: 048
     Dates: start: 20010101
  8. CELEXA [Concomitant]
     Indication: DEPRESSION

REACTIONS (14)
  - DRUG DOSE OMISSION [None]
  - SELF INJURIOUS BEHAVIOUR [None]
  - SOMNOLENCE [None]
  - CONVULSION [None]
  - DYSSTASIA [None]
  - JOINT DISLOCATION [None]
  - APHAGIA [None]
  - CONFUSIONAL STATE [None]
  - RESPIRATORY ARREST [None]
  - OVERDOSE [None]
  - SUICIDE ATTEMPT [None]
  - DEPRESSION [None]
  - VOMITING [None]
  - OFF LABEL USE [None]
